FAERS Safety Report 25154103 (Version 1)
Quarter: 2025Q2

REPORT INFORMATION
  Report Type: Spontaneous
  Country: US (occurrence: US)
  Receive Date: 20250403
  Receipt Date: 20250403
  Transmission Date: 20250717
  Serious: No
  Sender: ABBVIE
  Company Number: US-ABBVIE-6203318

PATIENT
  Age: 94 Year
  Sex: Female

DRUGS (2)
  1. ARMOUR THYROID [Suspect]
     Active Substance: THYROID, PORCINE
     Indication: Thyroid cancer
     Route: 048
  2. ARMOUR THYROID [Suspect]
     Active Substance: THYROID, PORCINE
     Indication: Thyroid cancer
     Route: 048

REACTIONS (7)
  - Pain [Unknown]
  - Unevaluable event [Unknown]
  - Speech disorder [Unknown]
  - Off label use [Unknown]
  - Eye excision [Unknown]
  - Vision blurred [Unknown]
  - Blood cholesterol increased [Unknown]
